FAERS Safety Report 8358023-6 (Version None)
Quarter: 2012Q2

REPORT INFORMATION
  Report Type: 
  Country: None (occurrence: None)
  Receive Date: 20120514
  Receipt Date: 20120512
  Transmission Date: 20120825
  Serious: Yes (Other)
  Sender: FDA-Public Use
  Company Number: RU-BAYER-2012-020234

PATIENT
  Age: 33 Year
  Sex: Male
  Weight: 90 kg

DRUGS (1)
  1. ULTRAVIST 150 [Suspect]
     Indication: PRODUCT USED FOR UNKNOWN INDICATION
     Dosage: 120 ML, ONCE
     Route: 042
     Dates: start: 20120228, end: 20120228

REACTIONS (8)
  - ERYTHEMA [None]
  - NAUSEA [None]
  - BLOOD PRESSURE SYSTOLIC INCREASED [None]
  - VOMITING [None]
  - TACHYCARDIA [None]
  - FACE OEDEMA [None]
  - AGITATION [None]
  - ANXIETY [None]
